FAERS Safety Report 10095427 (Version 1)
Quarter: 2014Q2

REPORT INFORMATION
  Report Type: Spontaneous
  Country: US (occurrence: None)
  Receive Date: 20140418
  Receipt Date: 20140418
  Transmission Date: 20141212
  Serious: Yes (Other)
  Sender: FDA-Public Use
  Company Number: 1402-0406

PATIENT
  Age: 83 Year
  Sex: Male

DRUGS (13)
  1. EYLEA [Suspect]
     Indication: AGE-RELATED MACULAR DEGENERATION
     Route: 031
     Dates: start: 20130518
  2. CARIDOPA (CARIDOPA) [Concomitant]
  3. NAZONEX (MOMETASONE FUROATE) [Concomitant]
  4. PLAVIX (CLOPIDOGREL BISULFATE) (CLOPIDOGREL BISULFATE) [Concomitant]
  5. VERAPAMIL (VERAPAMIL) [Concomitant]
  6. SIMVASTATIN (SIMVASTATIN) [Concomitant]
  7. LISINOPRIL (LISINOPRIL) [Concomitant]
  8. ALTACE (RAMIPRIL) [Concomitant]
  9. SPIRIVA [Concomitant]
  10. FLOMAX (MORNIFLUMATE) [Concomitant]
  11. AVODART (DUTASTERIDE) CAPSULES [Concomitant]
  12. PROVENTIL (SALBUTAMOL) [Concomitant]
  13. CIPRODEX (CIPROFLOXACIN HYDROCHLORIDE) [Concomitant]

REACTIONS (4)
  - Blindness transient [None]
  - Uveitis [None]
  - Drug hypersensitivity [None]
  - Vision blurred [None]
